FAERS Safety Report 7824655-4 (Version None)
Quarter: 2011Q4

REPORT INFORMATION
  Report Type: 
  Country: None (occurrence: None)
  Receive Date: 20111019
  Receipt Date: 20111007
  Transmission Date: 20120403
  Serious: Yes (Other)
  Sender: FDA-Public Use
  Company Number: PHHY2011DE81108

PATIENT
  Sex: Male
  Weight: 88 kg

DRUGS (5)
  1. BISOPROLOL [Concomitant]
     Dosage: 5 MG, QD
     Route: 048
  2. GLEEVEC [Suspect]
     Dosage: 100 MG, QD
     Route: 048
     Dates: start: 20110920
  3. GLEEVEC [Suspect]
     Indication: GASTROINTESTINAL STROMAL TUMOUR
     Dosage: 400 MG, QD
     Route: 048
     Dates: start: 20110624, end: 20110919
  4. OMEPRAZOLE [Concomitant]
     Indication: GASTROOESOPHAGEAL REFLUX DISEASE
     Dosage: 40 MG, QD
     Route: 048
  5. VITAMIN B-12 [Concomitant]
     Dates: start: 20110905

REACTIONS (2)
  - BLOOD CREATINE PHOSPHOKINASE INCREASED [None]
  - MYOGLOBIN BLOOD INCREASED [None]
